FAERS Safety Report 25242925 (Version 2)
Quarter: 2025Q2

REPORT INFORMATION
  Report Type: Spontaneous
  Country: US (occurrence: US)
  Receive Date: 20250428
  Receipt Date: 20250520
  Transmission Date: 20250716
  Serious: No
  Sender: BAUSCH AND LOMB
  Company Number: US-BAUSCHBL-2025BNL006883

PATIENT
  Sex: Male

DRUGS (2)
  1. XIIDRA [Suspect]
     Active Substance: LIFITEGRAST
     Indication: Dry eye
     Route: 047
     Dates: start: 20250413
  2. XDEMVY [Concomitant]
     Active Substance: LOTILANER
     Indication: Product used for unknown indication
     Route: 047
     Dates: start: 20250413

REACTIONS (4)
  - Eyelid disorder [Recovered/Resolved]
  - Lacrimation increased [Recovered/Resolved]
  - Product use complaint [Unknown]
  - Product container issue [Unknown]

NARRATIVE: CASE EVENT DATE: 20250413
